FAERS Safety Report 11390561 (Version 1)
Quarter: 2015Q3

REPORT INFORMATION
  Report Type: Spontaneous
  Country: US (occurrence: US)
  Receive Date: 20150818
  Receipt Date: 20150818
  Transmission Date: 20151125
  Serious: No
  Sender: FDA-Public Use
  Company Number: US-ROCHE-1268572

PATIENT
  Sex: Female
  Weight: 46.31 kg

DRUGS (8)
  1. COPEGUS [Suspect]
     Active Substance: RIBAVIRIN
     Indication: CHRONIC HEPATITIS C
     Dosage: DIVIDED DOSES (400/400)
     Route: 048
     Dates: start: 20130611, end: 20131217
  2. XANAX [Concomitant]
     Active Substance: ALPRAZOLAM
     Route: 065
  3. TRAZODONE [Concomitant]
     Active Substance: TRAZODONE HYDROCHLORIDE
     Dosage: BEDTIME
     Route: 065
  4. DESYREL [Concomitant]
     Active Substance: TRAZODONE HYDROCHLORIDE
     Dosage: BEDTIME
     Route: 065
  5. PEGASYS [Suspect]
     Active Substance: PEGINTERFERON ALFA-2A
     Indication: CHRONIC HEPATITIS C
     Route: 058
     Dates: start: 20130611, end: 20131217
  6. TRAZODONE [Concomitant]
     Active Substance: TRAZODONE HYDROCHLORIDE
     Route: 065
  7. XANAX [Concomitant]
     Active Substance: ALPRAZOLAM
     Indication: ANXIETY
     Dosage: 6 AM-4 PM
     Route: 065
  8. TRAZODONE [Concomitant]
     Active Substance: TRAZODONE HYDROCHLORIDE
     Route: 065

REACTIONS (25)
  - Fatigue [Not Recovered/Not Resolved]
  - Insomnia [Recovered/Resolved]
  - Aerophagia [Unknown]
  - Respiratory depth decreased [Unknown]
  - Gallbladder disorder [Unknown]
  - Decreased appetite [Unknown]
  - Abdominal discomfort [Unknown]
  - Feeling abnormal [Not Recovered/Not Resolved]
  - Gastrointestinal sounds abnormal [Unknown]
  - Vision blurred [Unknown]
  - Hepatic steatosis [Unknown]
  - Asthenia [Unknown]
  - Eructation [Unknown]
  - Weight decreased [Recovered/Resolved]
  - Vomiting [Unknown]
  - Panic attack [Unknown]
  - Nausea [Unknown]
  - Decreased appetite [Not Recovered/Not Resolved]
  - Anxiety [Recovered/Resolved]
  - Faeces pale [Unknown]
  - Respiratory rate increased [Unknown]
  - Musculoskeletal chest pain [Unknown]
  - Flatulence [Unknown]
  - Depressed mood [Unknown]
  - Blood pressure decreased [Recovered/Resolved]
